FAERS Safety Report 9931746 (Version 1)
Quarter: 2014Q1

REPORT INFORMATION
  Report Type: Spontaneous
  Country: US (occurrence: US)
  Receive Date: 20140228
  Receipt Date: 20140228
  Transmission Date: 20141002
  Serious: Yes (Other)
  Sender: FDA-Public Use
  Company Number: US-BAYER-2014-026734

PATIENT
  Age: 45 Year
  Sex: Female
  Weight: 53.97 kg

DRUGS (1)
  1. GADAVIST [Suspect]
     Indication: NUCLEAR MAGNETIC RESONANCE IMAGING BRAIN
     Dosage: 5.5 MG, ONCE
     Route: 042
     Dates: start: 20140217, end: 20140217

REACTIONS (4)
  - Throat irritation [None]
  - Dysphagia [None]
  - Dizziness [None]
  - Panic reaction [None]
